FAERS Safety Report 7323623-9 (Version None)
Quarter: 2011Q1

REPORT INFORMATION
  Report Type: 
  Country: None (occurrence: None)
  Receive Date: 20110301
  Receipt Date: 20110224
  Transmission Date: 20110831
  Serious: Yes (Death, Life-Threatening)
  Sender: FDA-Public Use
  Company Number: CA-ROCHE-762153

PATIENT

DRUGS (4)
  1. LEUCOVORIN CALCIUM [Concomitant]
     Dates: start: 20100101
  2. 5-FU [Concomitant]
     Dates: start: 20100101
  3. IRINOTECAN [Concomitant]
     Dates: start: 20100101
  4. AVASTIN [Suspect]
     Route: 042
     Dates: start: 20100101, end: 20100101

REACTIONS (2)
  - NEOPLASM MALIGNANT [None]
  - GASTROINTESTINAL PERFORATION [None]
